FAERS Safety Report 8543230-X (Version None)
Quarter: 2012Q3

REPORT INFORMATION
  Report Type: 
  Country: None (occurrence: None)
  Receive Date: 20120727
  Receipt Date: 20120723
  Transmission Date: 20120928
  Serious: Yes (Other)
  Sender: FDA-Public Use
  Company Number: JP-BAYER-2012-059748

PATIENT
  Age: 33 Year
  Sex: Female

DRUGS (6)
  1. MEILAX [Concomitant]
     Indication: DEPRESSION
     Dosage: DAILY DOSE 1 MG
     Route: 048
     Dates: start: 20050101
  2. MEILAX [Concomitant]
     Indication: INSOMNIA
  3. ETHINYLESTRADIOL W/NORETHISTERONE ACETATE [Concomitant]
     Indication: DYSMENORRHOEA
     Dosage: UNK
     Route: 048
  4. YAZ [Suspect]
     Indication: DYSMENORRHOEA
     Dosage: 1 DF, QD
     Route: 048
     Dates: start: 20120611, end: 20120612
  5. ZOLPIDEM [Concomitant]
     Indication: DEPRESSION
     Dosage: DAILY DOSE 5 MG
     Route: 048
     Dates: start: 20050101
  6. ZOLPIDEM [Concomitant]
     Indication: INSOMNIA

REACTIONS (2)
  - TOXIC SKIN ERUPTION [None]
  - RASH GENERALISED [None]
